FAERS Safety Report 8684623 (Version 2)
Quarter: 2012Q4

REPORT INFORMATION
  Report Type: Report from Study
  Country: IE (occurrence: IE)
  Receive Date: 20120726
  Receipt Date: 20120907
  Transmission Date: 20130627
  Serious: Yes (Death)
  Sender: FDA-Public Use
  Company Number: IE-ROCHE-1091855

PATIENT
  Sex: Male

DRUGS (5)
  1. MIRCERA [Suspect]
     Indication: NEPHROGENIC ANAEMIA
     Route: 058
     Dates: end: 20110110
  2. BUTRANS [Concomitant]
     Indication: CANCER PAIN
     Dosage: 20 ug/L
     Route: 061
  3. DONEPEZIL [Concomitant]
     Indication: DEMENTIA
     Route: 048
  4. MEMANTINE [Concomitant]
     Indication: DEMENTIA
     Route: 048
  5. MEGESTROL [Concomitant]
     Indication: DECREASED APPETITE
     Route: 048
     Dates: start: 201101

REACTIONS (2)
  - Gastrointestinal cancer metastatic [Fatal]
  - Squamous cell carcinoma [Fatal]
